FAERS Safety Report 12733650 (Version 2)
Quarter: 2016Q4

REPORT INFORMATION
  Report Type: Report from Study
  Country: US (occurrence: US)
  Receive Date: 20160912
  Receipt Date: 20161207
  Transmission Date: 20170207
  Serious: Yes (Hospitalization)
  Sender: FDA-Public Use
  Company Number: US-GILEAD-2016-0221012

PATIENT
  Age: 87 Year
  Sex: Male

DRUGS (3)
  1. REMERON [Suspect]
     Active Substance: MIRTAZAPINE
     Dosage: 7.5 MG, QD AT BEDTIME
     Route: 065
  2. IDELALISIB [Suspect]
     Active Substance: IDELALISIB
     Indication: CHRONIC LYMPHOCYTIC LEUKAEMIA
     Dosage: 150 MG, BID
     Route: 048
     Dates: start: 20160226
  3. REMERON [Suspect]
     Active Substance: MIRTAZAPINE
     Indication: INSOMNIA
     Dosage: 15 MG, QD AT BEDTIME
     Route: 065
     Dates: start: 201502

REACTIONS (8)
  - Hypoaesthesia [Unknown]
  - Insomnia [Unknown]
  - Hernia [Unknown]
  - Gastrooesophageal reflux disease [Not Recovered/Not Resolved]
  - Back pain [Recovering/Resolving]
  - Abdominal pain [Recovering/Resolving]
  - Pain [Unknown]
  - Confusional state [Unknown]

NARRATIVE: CASE EVENT DATE: 201603
